FAERS Safety Report 25414861 (Version 1)
Quarter: 2025Q2

REPORT INFORMATION
  Report Type: Spontaneous
  Country: US (occurrence: US)
  Receive Date: 20250609
  Receipt Date: 20250609
  Transmission Date: 20250716
  Serious: Yes (Other)
  Sender: GENMAB
  Company Number: US-GENMAB-2025-00248

PATIENT

DRUGS (1)
  1. EPKINLY [Suspect]
     Active Substance: EPCORITAMAB-BYSP
     Route: 065

REACTIONS (4)
  - Sepsis [Unknown]
  - Hypotension [Unknown]
  - Diarrhoea [Unknown]
  - Pyrexia [Unknown]
